FAERS Safety Report 8500240-6 (Version None)
Quarter: 2012Q3

REPORT INFORMATION
  Report Type: 
  Country: None (occurrence: None)
  Receive Date: 20120710
  Receipt Date: 20120705
  Transmission Date: 20120928
  Serious: Yes (Hospitalization)
  Sender: FDA-Public Use
  Company Number: PHHO2012JP005426

PATIENT
  Sex: Female
  Weight: 51 kg

DRUGS (13)
  1. LANSOPRAZOLE [Concomitant]
     Indication: PROPHYLAXIS AGAINST GASTROINTESTINAL ULCER
     Dosage: 30 MG, UNK
     Dates: start: 20081014
  2. CELECOXIB [Concomitant]
     Indication: ARTHRALGIA
     Dosage: 200 MG, UNK
     Route: 048
     Dates: start: 20120402
  3. INC424 [Suspect]
     Dosage: UNK
     Route: 048
     Dates: start: 20120402, end: 20120409
  4. LASIX [Concomitant]
     Indication: OEDEMA PERIPHERAL
     Dosage: 20 MG, UNK
     Route: 048
     Dates: start: 20030811
  5. VITAMIN B12 [Concomitant]
     Indication: NEUROPATHY PERIPHERAL
     Dosage: 1500 MG, UNK
     Route: 048
  6. INC424 [Suspect]
     Indication: MYELOFIBROSIS
     Dosage: 30 MG, BID
     Route: 048
     Dates: start: 20111212, end: 20120331
  7. MAGNESIUM OXIDE [Concomitant]
     Indication: CONSTIPATION
     Dosage: 2000 MG, UNK
     Route: 048
     Dates: start: 20080715
  8. EXJADE [Concomitant]
     Indication: HAEMOCHROMATOSIS
     Dosage: 125 MG, UNK
     Route: 048
     Dates: start: 20100524, end: 20120521
  9. MORPHINE [Concomitant]
     Indication: CANCER PAIN
     Dosage: UNK
     Route: 048
     Dates: start: 20091214
  10. PREDNISOLONE [Suspect]
     Indication: PLATELET COUNT DECREASED
     Dosage: 10 MG, QD
     Route: 048
     Dates: start: 20040518
  11. INC424 [Suspect]
     Dosage: 20 MG, QD
     Dates: start: 20120525
  12. MS CONTIN [Concomitant]
     Indication: CANCER PAIN
     Dosage: 20 MG, UNK
     Route: 048
     Dates: start: 20091214
  13. HALCION [Concomitant]
     Indication: INSOMNIA
     Dosage: 0.25 MG, UNK
     Route: 048
     Dates: start: 20041207

REACTIONS (3)
  - CHOLECYSTITIS ACUTE [None]
  - PYREXIA [None]
  - HERPES ZOSTER [None]
